FAERS Safety Report 20759120 (Version 1)
Quarter: 2022Q2

REPORT INFORMATION
  Report Type: Spontaneous
  Country: US (occurrence: US)
  Receive Date: 20220427
  Receipt Date: 20220427
  Transmission Date: 20220720
  Serious: No
  Sender: FDA-Public Use
  Company Number: US-BioHaven Pharmaceuticals-2021BHV003156

PATIENT
  Age: 79 Year
  Sex: Female
  Weight: 77.180 kg

DRUGS (3)
  1. NURTEC ODT [Suspect]
     Active Substance: RIMEGEPANT SULFATE
     Indication: Migraine
     Dosage: SHE TOOK HER FIRST DOSE OF NURTEC ON AN UNKNOWN DATE LAST WEEK, AND TODAY (16-DEC-2021) WAS THE SECO
     Route: 048
     Dates: start: 202112
  2. VITAMIN D NOS [Concomitant]
     Active Substance: VITAMIN D NOS
     Indication: Vitamin supplementation
     Route: 065
  3. VITAMIN FOR EYES [Concomitant]
     Indication: Vitamin supplementation
     Route: 065

REACTIONS (1)
  - Therapeutic product effect incomplete [Recovering/Resolving]

NARRATIVE: CASE EVENT DATE: 20211216
